FAERS Safety Report 18437137 (Version 3)
Quarter: 2020Q4

REPORT INFORMATION
  Report Type: Report from Study
  Country: None (occurrence: US)
  Receive Date: 20201028
  Receipt Date: 20201123
  Transmission Date: 20210114
  Serious: Yes (Hospitalization, Other)
  Sender: FDA-Public Use
  Company Number: US-ABBVIE-20K-163-3619575-00

PATIENT
  Age: 78 Year
  Sex: Male
  Weight: 86.26 kg

DRUGS (7)
  1. LEVOTHYROXINE. [Concomitant]
     Active Substance: LEVOTHYROXINE
     Indication: THYROID DISORDER
  2. VALTREX [Concomitant]
     Active Substance: VALACYCLOVIR HYDROCHLORIDE
     Indication: HERPES ZOSTER
  3. VENCLEXTA [Suspect]
     Active Substance: VENETOCLAX
     Indication: CHRONIC LYMPHOCYTIC LEUKAEMIA
     Dosage: TAKE 4 TABLET BY MOUTH WITH A MEAL AND 8OZ OF WATER
     Route: 048
     Dates: start: 20181212
  4. AVODART [Concomitant]
     Active Substance: DUTASTERIDE
     Indication: MICTURITION DISORDER
  5. OXYCODONE [Concomitant]
     Active Substance: OXYCODONE
     Indication: PAIN
  6. NIACINAMIDE [Concomitant]
     Active Substance: NIACINAMIDE
     Indication: VITAMIN SUPPLEMENTATION
  7. ZOLPIDEM [Concomitant]
     Active Substance: ZOLPIDEM TARTRATE
     Indication: SLEEP DISORDER

REACTIONS (15)
  - Dyspnoea [Recovered/Resolved]
  - Feeling abnormal [Unknown]
  - Night sweats [Recovered/Resolved]
  - Therapeutic product effect decreased [Recovered/Resolved]
  - Atrial fibrillation [Recovered/Resolved]
  - Pyrexia [Recovered/Resolved]
  - Fatigue [Recovered/Resolved]
  - Gait disturbance [Unknown]
  - Lymphadenopathy [Not Recovered/Not Resolved]
  - Delirium [Recovered/Resolved]
  - Heart rate increased [Not Recovered/Not Resolved]
  - Fatigue [Recovered/Resolved]
  - Peripheral swelling [Not Recovered/Not Resolved]
  - Weight increased [Not Recovered/Not Resolved]
  - Adverse event [Unknown]

NARRATIVE: CASE EVENT DATE: 2020
